FAERS Safety Report 9752235 (Version 1)
Quarter: 2013Q4

REPORT INFORMATION
  Report Type: Spontaneous
  Country: US (occurrence: None)
  Receive Date: 20131212
  Receipt Date: 20131212
  Transmission Date: 20140711
  Serious: No
  Sender: FDA-Public Use
  Company Number: None

PATIENT
  Age: 74 None
  Sex: Female

DRUGS (3)
  1. NEOMYCIN AND POLYMYXIN B SULFATES AND HYDROCORTISONE OTIC SUSPENSION U [Suspect]
     Indication: EAR INFECTION
     Dosage: 4 DROPS IN EAR 4 TIMES PER DAY
     Dates: start: 20131107, end: 20131117
  2. GLUCOSAMINE [Concomitant]
  3. CHONDROITIN [Concomitant]

REACTIONS (4)
  - Ear discomfort [None]
  - Ear pruritus [None]
  - Ear swelling [None]
  - Ear pain [None]
